FAERS Safety Report 11816641 (Version 1)
Quarter: 2015Q4

REPORT INFORMATION
  Report Type: Spontaneous
  Country: US (occurrence: US)
  Receive Date: 20151210
  Receipt Date: 20151210
  Transmission Date: 20160305
  Serious: No
  Sender: FDA-Public Use
  Company Number: US-JNJFOC-20151105028

PATIENT
  Sex: Female

DRUGS (1)
  1. INVOKANA [Suspect]
     Active Substance: CANAGLIFLOZIN
     Indication: PRODUCT USED FOR UNKNOWN INDICATION
     Route: 065

REACTIONS (7)
  - Rash [Unknown]
  - Feeling abnormal [Unknown]
  - Eczema [Unknown]
  - Pollakiuria [Unknown]
  - Burning sensation [Unknown]
  - Fungal infection [Unknown]
  - Weight decreased [Unknown]
